FAERS Safety Report 15945714 (Version 1)
Quarter: 2019Q1

REPORT INFORMATION
  Report Type: Spontaneous
  Country: US (occurrence: US)
  Receive Date: 20190212
  Receipt Date: 20190212
  Transmission Date: 20190417
  Serious: Yes (Disabling)
  Sender: FDA-Public Use
  Company Number: None

PATIENT
  Age: 49 Year
  Sex: Female
  Weight: 119 kg

DRUGS (1)
  1. CANAGLIFLOZIN [Suspect]
     Active Substance: CANAGLIFLOZIN
     Indication: TYPE 2 DIABETES MELLITUS
     Route: 048

REACTIONS (9)
  - Diabetic complication [None]
  - Cellulitis [None]
  - Mental status changes [None]
  - Staphylococcal infection [None]
  - Diabetic foot infection [None]
  - Leg amputation [None]
  - Euglycaemic diabetic ketoacidosis [None]
  - Necrotising fasciitis [None]
  - Acute myocardial infarction [None]

NARRATIVE: CASE EVENT DATE: 20190131
